FAERS Safety Report 8778467 (Version 1)
Quarter: 2012Q4

REPORT INFORMATION
  Report Type: 
  Country: US (occurrence: US)
  Receive Date: 20120912
  Receipt Date: 20120912
  Transmission Date: 20130627
  Serious: No
  Sender: FDA-Public Use
  Company Number: US-ASTRAZENECA-2012SE54709

PATIENT
  Age: 63 Year
  Sex: Male
  Weight: 92.1 kg

DRUGS (2)
  1. CRESTOR [Suspect]
     Route: 048
  2. CAPRELSA [Suspect]
     Indication: THYROID CANCER
     Route: 048
     Dates: start: 20120725

REACTIONS (5)
  - Blood pressure increased [Unknown]
  - Epistaxis [Recovering/Resolving]
  - Stomatitis [Recovered/Resolved]
  - Acne [Not Recovered/Not Resolved]
  - Dry skin [Not Recovered/Not Resolved]
